FAERS Safety Report 21951949 (Version 1)
Quarter: 2023Q1

REPORT INFORMATION
  Report Type: Report from Study
  Country: US (occurrence: US)
  Receive Date: 20230203
  Receipt Date: 20230203
  Transmission Date: 20230418
  Serious: No
  Sender: FDA-Public Use
  Company Number: US-EXELIXIS-CABO-22048053

PATIENT
  Age: 64 Year
  Sex: Male

DRUGS (1)
  1. CABOMETYX [Suspect]
     Active Substance: CABOZANTINIB S-MALATE
     Indication: Product used for unknown indication
     Dosage: 60 MG
     Dates: end: 20220108

REACTIONS (5)
  - Fall [Unknown]
  - Confusional state [Unknown]
  - Fatigue [Unknown]
  - Blood pressure increased [Unknown]
  - Vomiting [Unknown]

NARRATIVE: CASE EVENT DATE: 20220108
